FAERS Safety Report 15777834 (Version 1)
Quarter: 2018Q4

REPORT INFORMATION
  Report Type: Spontaneous
  Country: US (occurrence: US)
  Receive Date: 20181231
  Receipt Date: 20181231
  Transmission Date: 20190205
  Serious: Yes (Hospitalization)
  Sender: FDA-Public Use
  Company Number: None

PATIENT
  Age: 64 Year
  Sex: Female

DRUGS (10)
  1. OMEPRAZOLE. [Concomitant]
     Active Substance: OMEPRAZOLE
     Dates: start: 20181106
  2. LISINOPRIL. [Concomitant]
     Active Substance: LISINOPRIL
     Dates: start: 20181120
  3. HUMIRA [Suspect]
     Active Substance: ADALIMUMAB
     Indication: RHEUMATOID ARTHRITIS
     Dosage: ?          OTHER FREQUENCY:EVERY 14 DAYS;?
     Route: 058
  4. AMITRIPTYLINE [Concomitant]
     Active Substance: AMITRIPTYLINE
     Dates: start: 20181029
  5. HUMIRA [Suspect]
     Active Substance: ADALIMUMAB
     Indication: RHEUMATOID FACTOR
     Dosage: ?          OTHER FREQUENCY:EVERY 14 DAYS;?
     Route: 058
  6. SERTRALINE [Concomitant]
     Active Substance: SERTRALINE HYDROCHLORIDE
     Dates: start: 20180604
  7. CLONAZEPAM. [Concomitant]
     Active Substance: CLONAZEPAM
     Dates: start: 20181105
  8. HYDROCODONE/ACETAMINOPHEN [Concomitant]
     Active Substance: ACETAMINOPHEN\HYDROCODONE
     Dates: start: 20180720
  9. WARFARIN [Concomitant]
     Active Substance: WARFARIN
     Dates: start: 20180605
  10. CELECOXIB. [Concomitant]
     Active Substance: CELECOXIB
     Dates: start: 20180910

REACTIONS (1)
  - Hospitalisation [None]

NARRATIVE: CASE EVENT DATE: 20181228
